FAERS Safety Report 5856612-1 (Version None)
Quarter: 2008Q3

REPORT INFORMATION
  Report Type: 
  Country: None (occurrence: None)
  Receive Date: 20080822
  Receipt Date: 20080822
  Transmission Date: 20090109
  Serious: No
  Sender: FDA-Public Use
  Company Number: None

PATIENT
  Age: 34 Year
  Sex: Female
  Weight: 68.0396 kg

DRUGS (1)
  1. OCELLA [Suspect]
     Indication: PREMENSTRUAL SYNDROME
     Dosage: 1X DAILY
     Dates: start: 20080710, end: 20080810

REACTIONS (6)
  - ANXIETY [None]
  - DEPRESSION [None]
  - MENSTRUAL DISORDER [None]
  - PANIC REACTION [None]
  - PHARMACEUTICAL PRODUCT COMPLAINT [None]
  - TREMOR [None]
